FAERS Safety Report 5762010-1 (Version None)
Quarter: 2008Q2

REPORT INFORMATION
  Report Type: 
  Country: None (occurrence: None)
  Receive Date: 20080603
  Receipt Date: 20080527
  Transmission Date: 20081010
  Serious: Yes (Life-Threatening, Hospitalization, Other)
  Sender: FDA-Public Use
  Company Number: 2008SP009140

PATIENT
  Age: 64 Year
  Sex: Female

DRUGS (3)
  1. PEGINTERFERON ALFA-2B (S-P) (PEGINTERFERON ALFA-2B) [Suspect]
     Indication: HEPATITIS VIRAL
     Dosage: 80 MCG; QW
     Dates: start: 20080307, end: 20080505
  2. RIBAVIRIN [Suspect]
     Indication: HEPATITIS VIRAL
     Dosage: 1000 MG; QD
     Dates: start: 20080307, end: 20080505
  3. ACETAMINOPHEN [Concomitant]

REACTIONS (6)
  - COAGULOPATHY [None]
  - ENCEPHALOPATHY [None]
  - GASTROINTESTINAL HAEMORRHAGE [None]
  - HEPATIC FAILURE [None]
  - PERITONITIS BACTERIAL [None]
  - RENAL FAILURE [None]
